FAERS Safety Report 8167256-3 (Version None)
Quarter: 2012Q1

REPORT INFORMATION
  Report Type: 
  Country: None (occurrence: None)
  Receive Date: 20120227
  Receipt Date: 20120221
  Transmission Date: 20120608
  Serious: Yes (Other)
  Sender: FDA-Public Use
  Company Number: US-PFIZER INC-2012046589

PATIENT
  Sex: Female
  Weight: 67.12 kg

DRUGS (2)
  1. TOVIAZ [Suspect]
     Indication: URINARY INCONTINENCE
  2. TOVIAZ [Suspect]
     Indication: MUSCLE SPASMS
     Dosage: 8 MG, DAILY
     Route: 048
     Dates: start: 20100501, end: 20100101

REACTIONS (16)
  - ANXIETY [None]
  - FLATULENCE [None]
  - ABDOMINAL PAIN UPPER [None]
  - BLADDER PAIN [None]
  - FRUSTRATION [None]
  - ASTHENIA [None]
  - BLADDER SPASM [None]
  - SOMNOLENCE [None]
  - DRUG INEFFECTIVE [None]
  - NAUSEA [None]
  - FATIGUE [None]
  - RENAL MASS [None]
  - MASTICATION DISORDER [None]
  - CONFUSIONAL STATE [None]
  - TOOTH DISORDER [None]
  - URINARY INCONTINENCE [None]
